FAERS Safety Report 15663403 (Version 1)
Quarter: 2018Q4

REPORT INFORMATION
  Report Type: Spontaneous
  Country: US (occurrence: US)
  Receive Date: 20181128
  Receipt Date: 20181128
  Transmission Date: 20190205
  Serious: No
  Sender: FDA-Public Use
  Company Number: US-TEVA-2018-US-973606

PATIENT
  Sex: Male

DRUGS (1)
  1. SIMVASTATIN. [Suspect]
     Active Substance: SIMVASTATIN
     Route: 065
     Dates: end: 20181105

REACTIONS (2)
  - Fatigue [Recovering/Resolving]
  - Pollakiuria [Recovering/Resolving]
